FAERS Safety Report 14750428 (Version 2)
Quarter: 2018Q2

REPORT INFORMATION
  Report Type: Spontaneous
  Country: JP (occurrence: JP)
  Receive Date: 20180412
  Receipt Date: 20180505
  Transmission Date: 20180711
  Serious: Yes (Hospitalization)
  Sender: FDA-Public Use
  Company Number: JP-CONCORDIA PHARMACEUTICALS INC.-GSH201804-001220

PATIENT
  Age: 29 Year
  Sex: Female

DRUGS (9)
  1. TACROLIMUS. [Concomitant]
     Active Substance: TACROLIMUS
  2. EZETIMIBE. [Concomitant]
     Active Substance: EZETIMIBE
  3. METHYLDOPA. [Concomitant]
     Active Substance: METHYLDOPA
  4. SULFAMETHOXAZOLE/TRIMETHOPRIM [Concomitant]
     Active Substance: SULFAMETHOXAZOLE\TRIMETHOPRIM
  5. LANSOPRAZOLE. [Concomitant]
     Active Substance: LANSOPRAZOLE
  6. PLAQUENIL [Suspect]
     Active Substance: HYDROXYCHLOROQUINE SULFATE
     Indication: SYSTEMIC LUPUS ERYTHEMATOSUS
     Route: 048
     Dates: start: 20170308, end: 20170310
  7. PREDNISOLONE. [Concomitant]
     Active Substance: PREDNISOLONE
  8. MYCOPHENOLATE MOFETIL. [Concomitant]
     Active Substance: MYCOPHENOLATE MOFETIL
  9. WARFARIN [Concomitant]
     Active Substance: WARFARIN

REACTIONS (6)
  - Atrioventricular block second degree [Recovering/Resolving]
  - Chest pain [Recovering/Resolving]
  - Sinus tachycardia [Recovering/Resolving]
  - Chest discomfort [Recovering/Resolving]
  - Electrocardiogram PR prolongation [Recovering/Resolving]
  - Palpitations [Recovering/Resolving]

NARRATIVE: CASE EVENT DATE: 20170310
